FAERS Safety Report 10137995 (Version 1)
Quarter: 2014Q2

REPORT INFORMATION
  Report Type: Report from Study
  Country: CA (occurrence: CA)
  Receive Date: 20140429
  Receipt Date: 20140429
  Transmission Date: 20141212
  Serious: Yes (Other)
  Sender: FDA-Public Use
  Company Number: CA-JNJFOC-20140418089

PATIENT
  Age: 75 Year
  Sex: Male
  Weight: 81.1 kg

DRUGS (2)
  1. REMICADE [Suspect]
     Indication: CROHN^S DISEASE
     Dosage: EVERY 7-8 WEEKS
     Route: 042
     Dates: start: 20091028
  2. METHOTREXATE [Concomitant]
     Route: 048

REACTIONS (2)
  - Localised infection [Recovered/Resolved]
  - Blister [Recovered/Resolved]
